FAERS Safety Report 19608379 (Version 2)
Quarter: 2021Q3

REPORT INFORMATION
  Report Type: Spontaneous
  Country: US (occurrence: US)
  Receive Date: 20210726
  Receipt Date: 20210726
  Transmission Date: 20211014
  Serious: No
  Sender: FDA-Public Use
  Company Number: US-BAYER-2021-174255

PATIENT
  Age: 73 Year
  Sex: Female
  Weight: 103.5 kg

DRUGS (6)
  1. BENAZEPRIL [Concomitant]
     Active Substance: BENAZEPRIL HYDROCHLORIDE
  2. AMILOSTAD HYDROCHLORTHIAZIDE [Concomitant]
  3. LEVOCETRIZINE HYDROCHLORIDE [Concomitant]
     Route: 048
  4. MONTELUKAST [Concomitant]
     Active Substance: MONTELUKAST SODIUM
  5. CLARITIN [Suspect]
     Active Substance: LORATADINE
     Route: 048
  6. ARMOUR THYROID [Concomitant]
     Active Substance: THYROID, PORCINE

REACTIONS (5)
  - Arthralgia [Unknown]
  - Hypoaesthesia [Unknown]
  - Joint swelling [Unknown]
  - Muscle tightness [Unknown]
  - Dry skin [None]
